FAERS Safety Report 4339845-5 (Version None)
Quarter: 2004Q2

REPORT INFORMATION
  Report Type: 
  Country: None (occurrence: None)
  Receive Date: 20040412
  Receipt Date: 20040308
  Transmission Date: 20050107
  Serious: Yes (Hospitalization)
  Sender: FDA-Public Use
  Company Number: 2004PK00473

PATIENT
  Age: 63 Year
  Sex: Female
  Weight: 95 kg

DRUGS (4)
  1. ARIMIDEX [Suspect]
     Indication: BREAST CANCER
     Dosage: 1 MG DAILY PO
     Route: 048
     Dates: start: 20011204
  2. TENSAN [Concomitant]
  3. FOSAMAX [Concomitant]
  4. KOMBIKALZ [Concomitant]

REACTIONS (3)
  - OSTEOPOROSIS [None]
  - SPINAL COMPRESSION FRACTURE [None]
  - SPONDYLOSIS [None]
